FAERS Safety Report 9398513 (Version 1)
Quarter: 2013Q3

REPORT INFORMATION
  Report Type: Spontaneous
  Country: IT (occurrence: IT)
  Receive Date: 20130712
  Receipt Date: 20130712
  Transmission Date: 20140515
  Serious: Yes (Other)
  Sender: FDA-Public Use
  Company Number: IT-TEVA-417220ISR

PATIENT
  Age: 27 Year
  Sex: Male

DRUGS (2)
  1. OLANZAPINA TEVA 10MG [Suspect]
     Indication: BIPOLAR DISORDER
     Dosage: 20 MILLIGRAM DAILY;
     Route: 048
     Dates: start: 20130101, end: 20130314
  2. DELORAZEPAM [Concomitant]
     Dosage: 4 MILLIGRAM DAILY;
     Route: 048

REACTIONS (3)
  - Impulse-control disorder [Recovered/Resolved]
  - Delusional disorder, persecutory type [Recovered/Resolved]
  - Verbal abuse [Recovered/Resolved]
